FAERS Safety Report 9358356 (Version 3)
Quarter: 2014Q1

REPORT INFORMATION
  Report Type: Spontaneous
  Country: FR (occurrence: FR)
  Receive Date: 20130620
  Receipt Date: 20140205
  Transmission Date: 20141002
  Serious: Yes (Other)
  Sender: FDA-Public Use
  Company Number: FR-ASTRAZENECA-2013SE46691

PATIENT
  Age: 70 Year
  Sex: Female

DRUGS (1)
  1. XEROQUEL [Suspect]
     Route: 048

REACTIONS (1)
  - Deep vein thrombosis [Recovered/Resolved]
